FAERS Safety Report 7815478-0 (Version None)
Quarter: 2011Q4

REPORT INFORMATION
  Report Type: 
  Country: None (occurrence: None)
  Receive Date: 20111014
  Receipt Date: 20111006
  Transmission Date: 20120403
  Serious: Yes (Other)
  Sender: FDA-Public Use
  Company Number: PHEH2008US07607

PATIENT
  Sex: Female

DRUGS (32)
  1. DEXAMETHASONE [Concomitant]
     Dosage: 4 MG
  2. AMBIEN [Concomitant]
     Dosage: 10 MG
  3. CLONAZEPAM [Concomitant]
  4. ZIAC [Concomitant]
  5. BLOOD TRANSFUSION, AUXILIARY PRODUCTS [Concomitant]
  6. MIRALAX [Concomitant]
  7. LORAZEPAM [Concomitant]
  8. NORCO [Concomitant]
  9. ZOFRAN [Concomitant]
     Route: 017
  10. ZOMETA [Suspect]
     Dosage: UNK
     Dates: start: 20040913, end: 20060601
  11. LORTAB [Concomitant]
     Dosage: 7.5 MG, UNK
  12. OXYCODONE AND ACETAMINOPHEN [Concomitant]
     Dosage: 5/325 MG
  13. ZITHROMAX [Concomitant]
     Dosage: 250 MG
  14. DARVOCET-N 50 [Concomitant]
  15. VICODIN [Concomitant]
  16. SHARK CARTILAGE [Concomitant]
  17. GLUCOSAMINE [Concomitant]
  18. FENTANYL [Concomitant]
     Dosage: 25 MG, UNK
     Route: 042
  19. CEPHALEXIN [Concomitant]
     Dosage: 500 MG
  20. SYNTHROID [Concomitant]
  21. POLYETHYLENE GLYCOL [Concomitant]
  22. LEVOXYL [Concomitant]
  23. CALCIUM CARBONATE [Concomitant]
  24. AREDIA [Suspect]
  25. TAMOXIFEN CITRATE [Concomitant]
     Dosage: 20 MG
  26. LEXAPRO [Concomitant]
     Dosage: 20 MG
  27. CORZIDE ^MONARCH^ [Concomitant]
  28. XANAX [Concomitant]
  29. IBUPROFEN (ADVIL) [Concomitant]
  30. FERROUS SULFATE TAB [Concomitant]
     Dosage: 325 MG
  31. CALCIUM CARBONATE [Concomitant]
  32. FLAXSEED OIL [Concomitant]

REACTIONS (61)
  - INFECTION [None]
  - DENTAL FISTULA [None]
  - PARAESTHESIA [None]
  - DYSGEUSIA [None]
  - BONE PAIN [None]
  - BREAST MASS [None]
  - HYPONATRAEMIA [None]
  - TOOTH ABSCESS [None]
  - LUNG NEOPLASM [None]
  - OSTEOPOROSIS [None]
  - FATIGUE [None]
  - NIGHT SWEATS [None]
  - PNEUMOTHORAX [None]
  - ORAL DISORDER [None]
  - MACROCYTOSIS [None]
  - OEDEMA PERIPHERAL [None]
  - RENAL DISORDER [None]
  - HEPATIC STEATOSIS [None]
  - IMPAIRED HEALING [None]
  - MYALGIA [None]
  - NEOPLASM PROGRESSION [None]
  - NEOPLASM MALIGNANT [None]
  - PLEURAL EFFUSION [None]
  - METASTASES TO LIVER [None]
  - DYSPNOEA [None]
  - ANXIETY [None]
  - UTERINE LEIOMYOMA [None]
  - BONE DISORDER [None]
  - PAIN [None]
  - CONCOMITANT DISEASE PROGRESSION [None]
  - VISUAL IMPAIRMENT [None]
  - RIB FRACTURE [None]
  - HYPERCALCAEMIA [None]
  - METASTASES TO BONE [None]
  - WEIGHT INCREASED [None]
  - RENAL CYST [None]
  - T-LYMPHOCYTE COUNT INCREASED [None]
  - OSTEOSCLEROSIS [None]
  - ARTHRALGIA [None]
  - PAGET'S DISEASE OF THE BREAST [None]
  - SWELLING [None]
  - DENTAL CARIES [None]
  - SEROMA [None]
  - DIVERTICULUM [None]
  - OSTEONECROSIS OF JAW [None]
  - TOOTH FRACTURE [None]
  - NERVE INJURY [None]
  - DEPRESSION [None]
  - UPPER RESPIRATORY TRACT INFECTION [None]
  - DRY SKIN [None]
  - TOOTH LOSS [None]
  - METASTASES TO SPLEEN [None]
  - SINUS TACHYCARDIA [None]
  - ATELECTASIS [None]
  - THYROID MASS [None]
  - OSTEITIS [None]
  - GOITRE [None]
  - INTERVERTEBRAL DISC DEGENERATION [None]
  - BREAST CYST [None]
  - BONE LESION [None]
  - HOT FLUSH [None]
